FAERS Safety Report 19163895 (Version 1)
Quarter: 2021Q2

REPORT INFORMATION
  Report Type: Spontaneous
  Country: US (occurrence: US)
  Receive Date: 20210420
  Receipt Date: 20210420
  Transmission Date: 20210717
  Serious: Yes (Life-Threatening)
  Sender: FDA-Public Use
  Company Number: None

PATIENT
  Age: 58 Year
  Sex: Male
  Weight: 26.76 kg

DRUGS (13)
  1. LISINOPRIL 10 MG [Suspect]
     Active Substance: LISINOPRIL
     Indication: HYPERTENSION
     Route: 048
     Dates: start: 20201026, end: 20201203
  2. SENNA?DOCUSATE [Concomitant]
     Active Substance: DOCUSATE SODIUM\SENNOSIDES
  3. ZINC SULFATE. [Concomitant]
     Active Substance: ZINC SULFATE
  4. ROSUVASTATIN. [Concomitant]
     Active Substance: ROSUVASTATIN
  5. LISINOPRIL 10 MG [Suspect]
     Active Substance: LISINOPRIL
     Indication: PROTEINURIA
     Route: 048
     Dates: start: 20201026, end: 20201203
  6. LACOSAMIDE. [Concomitant]
     Active Substance: LACOSAMIDE
  7. MELATONIN [Concomitant]
     Active Substance: MELATONIN
  8. ASA [Concomitant]
     Active Substance: ASPIRIN
  9. QUERCETIN [Concomitant]
     Active Substance: QUERCETIN
  10. INVOKANA [Suspect]
     Active Substance: CANAGLIFLOZIN
     Indication: DIABETES MELLITUS
     Route: 048
     Dates: start: 20200526, end: 20201203
  11. INVOKANA [Suspect]
     Active Substance: CANAGLIFLOZIN
     Indication: PNEUMONIA
     Route: 048
     Dates: start: 20200526, end: 20201203
  12. ASCORBIC ACID. [Concomitant]
     Active Substance: ASCORBIC ACID
  13. ZONISAMIDE. [Concomitant]
     Active Substance: ZONISAMIDE

REACTIONS (3)
  - Vomiting [None]
  - Acute kidney injury [None]
  - Proteinuria [None]

NARRATIVE: CASE EVENT DATE: 20201202
